FAERS Safety Report 10184095 (Version 1)
Quarter: 2014Q2

REPORT INFORMATION
  Report Type: Spontaneous
  Country: US (occurrence: US)
  Receive Date: 20140520
  Receipt Date: 20140520
  Transmission Date: 20141212
  Serious: No
  Sender: FDA-Public Use
  Company Number: US-ASTRAZENECA-2013SE60980

PATIENT
  Age: 59 Year
  Sex: Female

DRUGS (1)
  1. BUDESONIDE [Suspect]
     Indication: COLITIS MICROSCOPIC
     Dosage: 1-3 MG THREE TIMES A DAY
     Route: 048
     Dates: start: 20130727, end: 20130727

REACTIONS (6)
  - Feeling hot [Unknown]
  - Burning sensation [Recovered/Resolved]
  - Fatigue [Unknown]
  - Vasculitis [Unknown]
  - Headache [Recovered/Resolved]
  - Dizziness [Recovered/Resolved]
